FAERS Safety Report 9736142 (Version 1)
Quarter: 2013Q4

REPORT INFORMATION
  Report Type: Spontaneous
  Country: GB (occurrence: GB)
  Receive Date: 20131206
  Receipt Date: 20131206
  Transmission Date: 20140711
  Serious: Yes (Other)
  Sender: FDA-Public Use
  Company Number: PHHY2013GB139570

PATIENT
  Age: 79 Year
  Sex: Female
  Weight: 63.5 kg

DRUGS (3)
  1. MIRTAZAPINE [Suspect]
     Indication: INSOMNIA
     Dosage: 15 MG, UNK
     Route: 048
     Dates: start: 20130805, end: 20130807
  2. DOSULEPIN [Concomitant]
     Indication: INSOMNIA
     Dates: start: 20130408, end: 20130729
  3. NITRAZEPAM [Concomitant]
     Dosage: 5 MG, UNK
     Dates: start: 20130408, end: 20130802

REACTIONS (3)
  - Muscle spasms [Recovered/Resolved]
  - Suicidal ideation [Recovered/Resolved]
  - Headache [Recovered/Resolved]
